FAERS Safety Report 6690962-4 (Version None)
Quarter: 2010Q2

REPORT INFORMATION
  Report Type: 
  Country: None (occurrence: None)
  Receive Date: 20100421
  Receipt Date: 20100415
  Transmission Date: 20101027
  Serious: Yes (Hospitalization)
  Sender: FDA-Public Use
  Company Number: DK-NOVOPROD-307258

PATIENT
  Age: 60 Year
  Sex: Male
  Weight: 63 kg

DRUGS (10)
  1. VICTOZA [Suspect]
     Indication: TYPE 2 DIABETES MELLITUS
     Dosage: 1.2 MG, QD
     Route: 058
     Dates: start: 20100120, end: 20100312
  2. ATENOLOL [Concomitant]
     Indication: CARDIAC DISORDER
     Dosage: 100 MG, QD
  3. DILTIAZEM HCL [Concomitant]
     Indication: CARDIAC DISORDER
     Dosage: 180 MG, QD
     Route: 048
  4. ALISKIREN AND HYDROCHLOROTHIAZIDE [Concomitant]
     Indication: HYPERTENSION
     Dosage: UNK MG, QD
     Route: 048
  5. SPIRONOLACTONE [Concomitant]
     Indication: CARDIAC DISORDER
     Dosage: 25 MG, QD
     Route: 048
  6. ACETYLSALICYLIC ACID [Concomitant]
     Indication: ANTICOAGULANT THERAPY
     Dosage: 75 MG, QD
     Route: 048
  7. FUROSEMIDE [Concomitant]
     Indication: DIURETIC THERAPY
     Dosage: 40 MG, QD
     Route: 048
  8. SIMVASTATIN [Concomitant]
     Dosage: 80 MG, QD
     Route: 048
  9. METFORMIN [Concomitant]
     Dosage: 1 G, QD
     Route: 048
  10. ESOMEPRAZOLE [Concomitant]
     Indication: GASTRIC ULCER
     Dosage: 40 MG, QD
     Route: 048

REACTIONS (2)
  - CONSTIPATION [None]
  - DIVERTICULITIS [None]
